FAERS Safety Report 8619488-5 (Version None)
Quarter: 2012Q3

REPORT INFORMATION
  Report Type: 
  Country: None (occurrence: None)
  Receive Date: 20120824
  Receipt Date: 20120815
  Transmission Date: 20120928
  Serious: Yes (Other)
  Sender: FDA-Public Use
  Company Number: PHEH2012US016174

PATIENT
  Sex: Female

DRUGS (2)
  1. ILARIS [Suspect]
     Indication: URTICARIA
     Dosage: 180 MG, EVERY 8 WEEKS
     Route: 058
     Dates: start: 20120714
  2. ARMODAFINIL [Concomitant]

REACTIONS (8)
  - PRURITUS [None]
  - URTICARIA [None]
  - PYREXIA [None]
  - DIZZINESS [None]
  - INSOMNIA [None]
  - OROPHARYNGEAL PAIN [None]
  - RASH [None]
  - RHINORRHOEA [None]
